FAERS Safety Report 7061080-0 (Version None)
Quarter: 2010Q4

REPORT INFORMATION
  Report Type: 
  Country: None (occurrence: None)
  Receive Date: 20101026
  Receipt Date: 20101013
  Transmission Date: 20110411
  Serious: Yes (Hospitalization, Other)
  Sender: FDA-Public Use
  Company Number: US-PFIZER INC-2010123285

PATIENT
  Sex: Female
  Weight: 104.31 kg

DRUGS (5)
  1. GABAPENTIN [Suspect]
     Indication: NEURALGIA
     Dosage: 800 MG, 4X/DAY
     Route: 048
     Dates: start: 20000101
  2. LISINOPRIL [Concomitant]
     Indication: HYPERTENSION
     Dosage: UNK
  3. TRAZODONE [Concomitant]
     Indication: SLEEP DISORDER
     Dosage: UNK
  4. VICODIN [Concomitant]
     Indication: PAIN
     Dosage: UNK
  5. SOMA [Concomitant]
     Indication: PAIN
     Dosage: UNK

REACTIONS (8)
  - ANXIETY [None]
  - CARDIAC DISORDER [None]
  - CHRONIC OBSTRUCTIVE PULMONARY DISEASE [None]
  - DYSPNOEA [None]
  - INSOMNIA [None]
  - JOINT INJURY [None]
  - KIDNEY INFECTION [None]
  - OXYGEN SATURATION DECREASED [None]
